FAERS Safety Report 12237563 (Version 1)
Quarter: 2016Q2

REPORT INFORMATION
  Report Type: Spontaneous
  Country: US (occurrence: None)
  Receive Date: 20160404
  Receipt Date: 20160404
  Transmission Date: 20160815
  Serious: Yes (Disabling, Other)
  Sender: FDA-Public Use
  Company Number: None

PATIENT
  Age: 48 Year
  Sex: Female
  Weight: 74.84 kg

DRUGS (10)
  1. DIOVAN [Concomitant]
     Active Substance: VALSARTAN
  2. CLONAZEPAM. [Concomitant]
     Active Substance: CLONAZEPAM
  3. MULTI VITAMIN [Concomitant]
     Active Substance: VITAMINS
  4. SYNTHROID [Suspect]
     Active Substance: LEVOTHYROXINE SODIUM
     Indication: THYROID CANCER
     Dosage: 30 TABLET(S) ONCE A DAY TAKEN BY MOUTH
     Route: 048
     Dates: start: 20031001
  5. TRAMADOL. [Concomitant]
     Active Substance: TRAMADOL
  6. TYLENOL EXTRA STRENGTH [Concomitant]
     Active Substance: ACETAMINOPHEN
  7. VITAMIN D [Concomitant]
     Active Substance: CHOLECALCIFEROL
  8. PILOCARPINE. [Concomitant]
     Active Substance: PILOCARPINE
  9. SIMVASTATIN. [Concomitant]
     Active Substance: SIMVASTATIN
  10. METOPROLOL. [Concomitant]
     Active Substance: METOPROLOL

REACTIONS (18)
  - Spinal deformity [None]
  - Joint swelling [None]
  - Chest pain [None]
  - Amenorrhoea [None]
  - Supraventricular tachycardia [None]
  - Hypersensitivity [None]
  - Anxiety [None]
  - Back pain [None]
  - Alopecia [None]
  - Visual impairment [None]
  - Sjogren^s syndrome [None]
  - Migraine [None]
  - Labile hypertension [None]
  - Nervousness [None]
  - Abdominal pain [None]
  - Gastrointestinal disorder [None]
  - Flushing [None]
  - Pain in extremity [None]

NARRATIVE: CASE EVENT DATE: 20160121
